FAERS Safety Report 6769084-X (Version None)
Quarter: 2010Q2

REPORT INFORMATION
  Report Type: 
  Country: None (occurrence: None)
  Receive Date: 20100607
  Receipt Date: 20100602
  Transmission Date: 20101027
  Serious: Yes (Life-Threatening, Other)
  Sender: FDA-Public Use
  Company Number: 2010SP017526

PATIENT
  Age: 52 Year
  Sex: Male

DRUGS (7)
  1. MIRTAZAPINE [Suspect]
     Indication: DEPRESSION
  2. SEROQUEL [Suspect]
     Indication: INSOMNIA
  3. ALPRAZOLAM [Concomitant]
  4. BROTIZOLAM [Concomitant]
  5. FLUNITRAZEPAM [Concomitant]
  6. MAGNESIUM OXIDE [Concomitant]
  7. MOSAPRIDE CITRATE [Concomitant]

REACTIONS (18)
  - ANXIETY [None]
  - BEDRIDDEN [None]
  - CONTUSION [None]
  - DECREASED APPETITE [None]
  - DEHYDRATION [None]
  - DRUG INTERACTION [None]
  - DYSGRAPHIA [None]
  - DYSPHONIA [None]
  - DYSPNOEA [None]
  - EMOTIONAL DISTRESS [None]
  - FALL [None]
  - HAEMODIALYSIS [None]
  - HYPERKALAEMIA [None]
  - HYPOPHAGIA [None]
  - INSOMNIA [None]
  - MALNUTRITION [None]
  - RENAL FAILURE ACUTE [None]
  - SOMNOLENCE [None]
